FAERS Safety Report 15322537 (Version 2)
Quarter: 2018Q3

REPORT INFORMATION
  Report Type: Report from Study
  Country: BR (occurrence: BR)
  Receive Date: 20180827
  Receipt Date: 20180829
  Transmission Date: 20181010
  Serious: Yes (Death, Hospitalization, Other)
  Sender: FDA-Public Use
  Company Number: PHHY2018BR082892

PATIENT
  Age: 94 Year
  Sex: Female
  Weight: 54 kg

DRUGS (5)
  1. ACLASTA [Suspect]
     Active Substance: ZOLEDRONIC ACID
     Indication: OSTEOPOROSIS
     Dosage: 1 DF, Q12MO
     Route: 042
     Dates: start: 2013
  2. ACLASTA [Suspect]
     Active Substance: ZOLEDRONIC ACID
     Dosage: 1 DF, Q12MO
     Route: 042
     Dates: start: 2017
  3. SPIRONOLACTONE. [Concomitant]
     Active Substance: SPIRONOLACTONE
     Indication: ARRHYTHMIA
     Dosage: 25 MG, QD (MANY YEARS AGO)
     Route: 065
  4. TAPAZOL [Concomitant]
     Indication: THYROID DISORDER
     Dosage: 1 DF, QD
     Route: 065
  5. OMEPRAZOLE. [Concomitant]
     Active Substance: OMEPRAZOLE
     Indication: ABDOMINAL DISCOMFORT
     Dosage: 40 MG, QD (MANY YEARS AGO)
     Route: 065

REACTIONS (4)
  - Cough [Not Recovered/Not Resolved]
  - Bile output decreased [Not Recovered/Not Resolved]
  - Choking [Not Recovered/Not Resolved]
  - Cardio-respiratory arrest [Fatal]

NARRATIVE: CASE EVENT DATE: 20171204
